FAERS Safety Report 4284678-1 (Version None)
Quarter: 2004Q1

REPORT INFORMATION
  Report Type: 
  Country: None (occurrence: None)
  Receive Date: 20040130
  Receipt Date: 20040115
  Transmission Date: 20041129
  Serious: Yes (Life-Threatening, Hospitalization)
  Sender: FDA-Public Use
  Company Number: DE-SHR-03-018614

PATIENT
  Age: 74 Year
  Sex: Male
  Weight: 75 kg

DRUGS (10)
  1. QUADRAMET [Suspect]
     Indication: METASTASES TO BONE
     Dosage: 2.8 GBQ , 1 DOSE, INTRAVENOUS
     Route: 042
     Dates: start: 20030910, end: 20030910
  2. NOVONORM /DEN/REPAGLINIDE) [Concomitant]
  3. LISBEXAL (LISINOPRIL) [Concomitant]
  4. TOREM /GFR/(TORASEMIDE) [Concomitant]
  5. DECORTIN II [Concomitant]
  6. AMINEORIN [Concomitant]
  7. OMNIC (TAMSULOSIN HYDROCHLORIDE) [Concomitant]
  8. PANTOZOL (GRF/(PANTOPRAZOLE SODIUM) [Concomitant]
  9. ALDACTONE /USA/ [Concomitant]
  10. METAMIZOLE SODIUM (METAMIZOLE SODIUM) [Concomitant]

REACTIONS (10)
  - ANAEMIA [None]
  - C-REACTIVE PROTEIN INCREASED [None]
  - GASTROENTERITIS RADIATION [None]
  - PROCTITIS HAEMORRHAGIC [None]
  - PYREXIA [None]
  - RENAL FAILURE [None]
  - SHOCK [None]
  - SOMNOLENCE [None]
  - STOMATITIS [None]
  - THROMBOCYTOPENIA [None]
